FAERS Safety Report 18040697 (Version 2)
Quarter: 2020Q3

REPORT INFORMATION
  Report Type: Report from Study
  Country: IT (occurrence: IT)
  Receive Date: 20200717
  Receipt Date: 20200811
  Transmission Date: 20201103
  Serious: Yes (Other)
  Sender: FDA-Public Use
  Company Number: IT-009507513-2007ITA006536

PATIENT
  Age: 35 Year
  Sex: Male

DRUGS (1)
  1. FINASTERIDE. [Suspect]
     Active Substance: FINASTERIDE
     Indication: ANDROGENETIC ALOPECIA
     Dosage: 1 MILLIGRAM (MG)
     Route: 048
     Dates: start: 2007, end: 2015

REACTIONS (12)
  - Amnesia [Unknown]
  - Myalgia [Unknown]
  - Mental disorder [Unknown]
  - Depression [Unknown]
  - Libido decreased [Unknown]
  - Gastrointestinal disorder [Unknown]
  - Behaviour disorder [Unknown]
  - Erectile dysfunction [Unknown]
  - Sexual dysfunction [Unknown]
  - Male reproductive tract disorder [Unknown]
  - Asthenia [Unknown]
  - Infertility male [Unknown]
